FAERS Safety Report 12875711 (Version 4)
Quarter: 2019Q2

REPORT INFORMATION
  Report Type: Spontaneous
  Country: US (occurrence: US)
  Receive Date: 20161024
  Receipt Date: 20190604
  Transmission Date: 20190711
  Serious: Yes (Hospitalization)
  Sender: FDA-Public Use
  Company Number: US-B.I. PHARMACEUTICALS,INC./RIDGEFIELD-2016-BI-066897

PATIENT
  Age: 69 Year
  Sex: Male
  Weight: 127.05 kg

DRUGS (24)
  1. PRADAXA [Suspect]
     Active Substance: DABIGATRAN ETEXILATE MESYLATE
     Indication: ATRIAL FLUTTER
  2. DILTIAZEM. [Concomitant]
     Active Substance: DILTIAZEM
     Indication: BLOOD PRESSURE ABNORMAL
     Dosage: SUSTAINED ACTION
     Route: 048
     Dates: start: 20121231, end: 20150317
  3. FUROSEMIDE. [Concomitant]
     Active Substance: FUROSEMIDE
     Indication: BLOOD PRESSURE ABNORMAL
     Route: 048
     Dates: start: 20081118, end: 20150331
  4. LOSARTAN. [Concomitant]
     Active Substance: LOSARTAN
     Indication: BLOOD PRESSURE ABNORMAL
     Route: 048
     Dates: start: 20121231, end: 20141118
  5. TEMAZEPAM. [Concomitant]
     Active Substance: TEMAZEPAM
     Indication: SLEEP DISORDER
     Route: 048
  6. ALBUTEROL HFA [Concomitant]
     Active Substance: ALBUTEROL SULFATE
     Indication: PRODUCT USED FOR UNKNOWN INDICATION
     Dosage: INHALER
     Route: 065
  7. BUDESONIDE. [Concomitant]
     Active Substance: BUDESONIDE
     Indication: PRODUCT USED FOR UNKNOWN INDICATION
     Dosage: FORM STRENGTH: 80
     Route: 065
  8. PRADAXA [Suspect]
     Active Substance: DABIGATRAN ETEXILATE MESYLATE
     Indication: DRUG THERAPY
  9. CHLORHEXIDINE [Concomitant]
     Active Substance: CHLORHEXIDINE
     Indication: PRODUCT USED FOR UNKNOWN INDICATION
     Dosage: FORM STRENGTH: 4% SKIN CLEANSER 120 ML, RINSE WELL AFTER WASHING WITH THE CLEANSER USE
     Route: 050
  10. AQUAPHOR [Concomitant]
     Active Substance: PETROLATUM
     Indication: SKIN DISORDER
     Route: 050
  11. CLINDAMYCIN. [Concomitant]
     Active Substance: CLINDAMYCIN
     Indication: PAPULE
     Dosage: FORM STRENGTH: 1% TOP SWAB; APPLY TO ERODED ITCHY PAPULES ON BACK, ARMS, CHEST
     Route: 050
  12. LUBRIDERM [Concomitant]
     Active Substance: AVOBENZONE\HOMOSALATE\OCTISALATE\OCTOCRYLENE\OXYBENZONE
     Indication: DRY SKIN
     Dosage: FORMULATION: UNSCENT LOTION
     Route: 050
  13. PRADAXA [Suspect]
     Active Substance: DABIGATRAN ETEXILATE MESYLATE
     Indication: ATRIAL FIBRILLATION
     Route: 048
     Dates: start: 20121231, end: 20150314
  14. FLUOROURACIL. [Concomitant]
     Active Substance: FLUOROURACIL
     Indication: PRODUCT USED FOR UNKNOWN INDICATION
     Dosage: FORM STRENGTH: 5% CREAM 40 GM; USE ON FOREARMS TWICE DAILY FOR 3-4 WEEKS
     Route: 050
  15. MUPIROCIN. [Concomitant]
     Active Substance: MUPIROCIN
     Indication: INFECTED SKIN ULCER
     Dosage: FORM STRENGTH: 2% 22 GM
     Route: 050
  16. CLINDAMYCIN. [Concomitant]
     Active Substance: CLINDAMYCIN
     Indication: SKIN EROSION
  17. INSULIN GLARGINE [Concomitant]
     Active Substance: INSULIN GLARGINE
     Indication: DIABETES MELLITUS
     Dosage: FORM STRENGTH: 100 UNIT/ML
     Route: 058
  18. ALLOPURINOL. [Concomitant]
     Active Substance: ALLOPURINOL
     Indication: BLOOD URIC ACID INCREASED
     Route: 048
  19. LANOXIN [Concomitant]
     Active Substance: DIGOXIN
     Indication: CARDIAC DISORDER
     Route: 048
     Dates: start: 20121231, end: 20140909
  20. INSULIN ASPART [Concomitant]
     Active Substance: INSULIN ASPART
     Indication: DIABETES MELLITUS
     Dosage: FORM STRENGTH: 100 UNIT/ML
     Route: 058
  21. LOSARTAN. [Concomitant]
     Active Substance: LOSARTAN
     Indication: RENAL DISORDER PROPHYLAXIS
  22. SIMVASTATIN. [Concomitant]
     Active Substance: SIMVASTATIN
     Indication: BLOOD CHOLESTEROL ABNORMAL
     Route: 048
  23. TIOTROPIUM [Concomitant]
     Active Substance: TIOTROPIUM
     Indication: RESPIRATION ABNORMAL
     Route: 055
     Dates: start: 20121231, end: 20150203
  24. VITAMIN D [Concomitant]
     Active Substance: VITAMIN D NOS
     Indication: VITAMIN SUPPLEMENTATION
     Route: 048

REACTIONS (2)
  - Epistaxis [Unknown]
  - Internal haemorrhage [Unknown]

NARRATIVE: CASE EVENT DATE: 20140325
